FAERS Safety Report 25652583 (Version 1)
Quarter: 2025Q3

REPORT INFORMATION
  Report Type: Spontaneous
  Country: EU (occurrence: EU)
  Receive Date: 20250807
  Receipt Date: 20250807
  Transmission Date: 20251020
  Serious: Yes (Hospitalization, Other)
  Sender: CELLTRION
  Company Number: EU-ABBVIE-6286631

PATIENT

DRUGS (4)
  1. RITUXIMAB [Suspect]
     Active Substance: RITUXIMAB
     Indication: Chronic lymphocytic leukaemia
     Route: 065
  2. VENETOCLAX [Suspect]
     Active Substance: VENETOCLAX
     Indication: Chronic lymphocytic leukaemia
     Route: 048
  3. VENETOCLAX [Suspect]
     Active Substance: VENETOCLAX
     Route: 048
  4. CEMIPLIMAB [Suspect]
     Active Substance: CEMIPLIMAB
     Indication: Squamous cell carcinoma of skin
     Route: 065
     Dates: start: 20240404

REACTIONS (4)
  - Haemophagocytic lymphohistiocytosis [Unknown]
  - Renal injury [Unknown]
  - Tachycardia [Unknown]
  - Hypotension [Unknown]
